FAERS Safety Report 8103734-0 (Version None)
Quarter: 2011Q4

REPORT INFORMATION
  Report Type: 
  Country: None (occurrence: None)
  Receive Date: 20111222
  Receipt Date: 20110824
  Transmission Date: 20120403
  Serious: Yes (Hospitalization)
  Sender: FDA-Public Use
  Company Number: UTC-009699

PATIENT
  Age: 42 Year
  Sex: Male
  Weight: 75 kg

DRUGS (4)
  1. OXYGEN (OXYGEN) [Concomitant]
  2. LETAIRIS [Concomitant]
  3. SYMBICORT [Concomitant]
  4. TYVASO [Suspect]
     Indication: COR PULMONALE CHRONIC
     Dosage: 144 MCG (36 MCG, 4 IN 1 D), INHALATION
     Route: 055
     Dates: start: 20110611

REACTIONS (4)
  - COUGH [None]
  - MUSCLE FATIGUE [None]
  - CHEST PAIN [None]
  - DIZZINESS [None]
